FAERS Safety Report 9174761 (Version 1)
Quarter: 2013Q1

REPORT INFORMATION
  Report Type: Spontaneous
  Country: US (occurrence: None)
  Receive Date: 20130315
  Receipt Date: 20130315
  Transmission Date: 20140127
  Serious: No
  Sender: FDA-Public Use
  Company Number: TPA2012A09152

PATIENT
  Age: 60 Year
  Sex: Male

DRUGS (10)
  1. ADENURIC (FEBUXOSTAT) [Suspect]
     Indication: HYPERURICAEMIA
     Dosage: 80 MG (80 MG, 1-2) 50/1000 MG/DIE
     Route: 048
     Dates: start: 20121009
  2. JANUMET (METFORMIN HYDROCHLORIDE, SITAGLIPTIN PHOSPHATE MONOHYDRATE) [Suspect]
     Indication: DIABETES MELLITUS
     Route: 048
  3. PLAVIX (CLOPIDOGREL BISULFATE) [Concomitant]
  4. CARDEGIC (ACETYLSALICYLATE LYSINE) [Concomitant]
  5. FUROSEMIDE (FUROSEMIDE) [Concomitant]
  6. TAHOR (ATORVASTATIN CALCIUM) [Concomitant]
  7. ALDACTONE (SPIRONOLACTONE) [Concomitant]
  8. TEMERIT (NEBIVOLOL HYDROCHLORIDE) [Concomitant]
  9. PRITOR (LACIDIPINE) [Concomitant]
  10. TEMESTA (LORAZEPAM) [Concomitant]

REACTIONS (3)
  - Hepatic pain [None]
  - Hepatocellular injury [None]
  - Decreased appetite [None]
